FAERS Safety Report 4518031-X (Version None)
Quarter: 2004Q4

REPORT INFORMATION
  Report Type: 
  Country: None (occurrence: None)
  Receive Date: 20041130
  Receipt Date: 20041118
  Transmission Date: 20050328
  Serious: Yes (Life-Threatening, Hospitalization)
  Sender: FDA-Public Use
  Company Number: US_990319370

PATIENT
  Age: 28 Year
  Sex: Male
  Weight: 87 kg

DRUGS (4)
  1. HUMATROPE [Suspect]
     Indication: HYPOPITUITARISM
     Dosage: 0.8 MG/1 DAY
     Dates: start: 19980513
  2. L-THYROXINE [Concomitant]
  3. HYDROCORTISONE [Concomitant]
  4. GONADOTROPIN CHORIONIC [Concomitant]

REACTIONS (11)
  - CONFUSIONAL STATE [None]
  - CRYING [None]
  - DEHYDRATION [None]
  - DEPRESSION [None]
  - DRUG WITHDRAWAL SYNDROME [None]
  - GASTROENTERITIS VIRAL [None]
  - HYPOTENSION [None]
  - PSYCHOTIC DISORDER [None]
  - RELATIONSHIP BREAKDOWN [None]
  - SUICIDAL IDEATION [None]
  - TREATMENT NONCOMPLIANCE [None]
